FAERS Safety Report 19166276 (Version 2)
Quarter: 2021Q2

REPORT INFORMATION
  Report Type: Report from Study
  Country: US (occurrence: US)
  Receive Date: 20210421
  Receipt Date: 20210505
  Transmission Date: 20210717
  Serious: Yes (Hospitalization, Other)
  Sender: FDA-Public Use
  Company Number: US-BAUSCH-BL-2021-013708

PATIENT
  Age: 60 Year
  Sex: Female

DRUGS (4)
  1. XIFAXAN [Suspect]
     Active Substance: RIFAXIMIN
     Indication: HEPATIC CIRRHOSIS
     Route: 048
     Dates: start: 202102, end: 202102
  2. XIFAXAN [Suspect]
     Active Substance: RIFAXIMIN
     Route: 048
     Dates: start: 202102, end: 20210301
  3. XIFAXAN [Suspect]
     Active Substance: RIFAXIMIN
     Route: 048
     Dates: start: 20210305
  4. LACTULOSE. [Concomitant]
     Active Substance: LACTULOSE
     Indication: PRODUCT USED FOR UNKNOWN INDICATION

REACTIONS (9)
  - Intentional product use issue [Unknown]
  - Renal disorder [Unknown]
  - Insurance issue [Unknown]
  - Urinary tract infection [Unknown]
  - Therapy interrupted [Unknown]
  - Inability to afford medication [Unknown]
  - Swelling [Unknown]
  - Sepsis [Unknown]
  - Ammonia increased [Unknown]

NARRATIVE: CASE EVENT DATE: 2021
